FAERS Safety Report 17420635 (Version 4)
Quarter: 2020Q3

REPORT INFORMATION
  Report Type: Spontaneous
  Country: US (occurrence: US)
  Receive Date: 20200214
  Receipt Date: 20200831
  Transmission Date: 20201102
  Serious: Yes (Other)
  Sender: FDA-Public Use
  Company Number: US-PFIZER INC-2020062372

PATIENT
  Age: 62 Year
  Sex: Female
  Weight: 45.81 kg

DRUGS (3)
  1. AMBIEN [Concomitant]
     Active Substance: ZOLPIDEM TARTRATE
     Indication: SLEEP DISORDER
     Dosage: UNK, (TAKES IT ABOUT ONCE A MONTH TO 6 WEEKS, BUT DID NOT RECALL TAKING 2 WEEKS BEFORE THE SYMPTOMS)
  2. TOVIAZ [Suspect]
     Active Substance: FESOTERODINE FUMARATE
     Indication: INCONTINENCE
     Dosage: 8 MG, 1X/DAY
     Route: 048
     Dates: start: 20200208
  3. FERRONAL [Concomitant]
     Indication: MIGRAINE
     Dosage: UNK

REACTIONS (17)
  - Constipation [Not Recovered/Not Resolved]
  - Migraine [Recovered/Resolved]
  - Alopecia [Unknown]
  - Weight decreased [Unknown]
  - Headache [Not Recovered/Not Resolved]
  - Feeling abnormal [Unknown]
  - Muscle spasticity [Unknown]
  - Therapeutic product effect delayed [Unknown]
  - Nightmare [Recovered/Resolved]
  - Abdominal discomfort [Unknown]
  - Insomnia [Not Recovered/Not Resolved]
  - Abdominal pain [Unknown]
  - Visual impairment [Unknown]
  - Drug ineffective [Unknown]
  - Diverticulitis [Unknown]
  - Pain [Unknown]
  - Anxiety [Unknown]

NARRATIVE: CASE EVENT DATE: 202002
